FAERS Safety Report 7627924-6 (Version None)
Quarter: 2011Q3

REPORT INFORMATION
  Report Type: 
  Country: None (occurrence: None)
  Receive Date: 20110722
  Receipt Date: 20110708
  Transmission Date: 20111222
  Serious: Yes (Death, Other)
  Sender: FDA-Public Use
  Company Number: AU-MYLANLABS-2011S1014294

PATIENT
  Age: 15 Year
  Sex: Female

DRUGS (3)
  1. REMIFENTANIL [Suspect]
     Indication: SEDATION
  2. MIDAZOLAM HCL [Suspect]
     Indication: SEDATION
  3. MIDAZOLAM HCL [Suspect]
     Indication: PREMEDICATION

REACTIONS (2)
  - CARDIAC ARREST [None]
  - PULMONARY HYPERTENSION [None]
